FAERS Safety Report 21116959 (Version 1)
Quarter: 2022Q3

REPORT INFORMATION
  Report Type: Spontaneous
  Country: FR (occurrence: FR)
  Receive Date: 20220722
  Receipt Date: 20220722
  Transmission Date: 20221027
  Serious: Yes (Other)
  Sender: FDA-Public Use
  Company Number: None

PATIENT
  Age: 41 Year
  Sex: Male

DRUGS (7)
  1. SILDENAFIL [Suspect]
     Active Substance: SILDENAFIL
     Indication: Product used for unknown indication
     Dosage: 2 X 50MG PER SESSION
     Route: 065
  2. UNSPECIFIED INGREDIENT [Suspect]
     Active Substance: UNSPECIFIED INGREDIENT
     Indication: Product used for unknown indication
     Route: 065
  3. 3-METHYLMETHCATHINONE [Suspect]
     Active Substance: 3-METHYLMETHCATHINONE
     Indication: Product used for unknown indication
     Dosage: UNIT DOSE: 3 G , FREQUENCY : 1 WEEK, DURATION : 2 YEARS
  4. 3-METHYLMETHCATHINONE [Suspect]
     Active Substance: 3-METHYLMETHCATHINONE
     Dosage: UNIT DOSE: 3 G , FREQUENCY : 1 WEEK, DURATION : 2 YEARS
  5. UNSPECIFIED INGREDIENT [Suspect]
     Active Substance: UNSPECIFIED INGREDIENT
     Indication: Product used for unknown indication
     Route: 065
  6. ALPHA-PHP [Suspect]
     Active Substance: ALPHA-PHP
     Indication: Product used for unknown indication
     Dosage: UNIT DOSE: 2 G , FREQUENCY : 1 WEEK, DURATION : 2 YEARS
  7. ALPHA-PHP [Suspect]
     Active Substance: ALPHA-PHP
     Dosage: UNIT DOSE: 2 G , FREQUENCY : 1 WEEK, DURATION : 2 YEARS

REACTIONS (1)
  - Drug dependence [Not Recovered/Not Resolved]
